FAERS Safety Report 19972601 (Version 4)
Quarter: 2022Q1

REPORT INFORMATION
  Report Type: Spontaneous
  Country: CL (occurrence: CL)
  Receive Date: 20211019
  Receipt Date: 20220329
  Transmission Date: 20220423
  Serious: Yes (Other)
  Sender: FDA-Public Use
  Company Number: CL-ORGANON-O2110CHL001880

PATIENT
  Age: 30 Year
  Sex: Female

DRUGS (1)
  1. ETONOGESTREL [Suspect]
     Active Substance: ETONOGESTREL
     Indication: Contraception
     Dosage: 1 IMPLANT, EVERY 3 YEARS. THIRD IMPLANT
     Route: 059
     Dates: start: 201711, end: 20211106

REACTIONS (7)
  - Hemiparesis [Not Recovered/Not Resolved]
  - Device dislocation [Recovered/Resolved]
  - Complication of device removal [Recovered/Resolved]
  - Complication of device removal [Recovered/Resolved]
  - Hypoaesthesia [Not Recovered/Not Resolved]
  - Complication of device removal [Recovered/Resolved]
  - Incorrect product administration duration [Unknown]

NARRATIVE: CASE EVENT DATE: 20201101
